FAERS Safety Report 6843451-8 (Version None)
Quarter: 2010Q3

REPORT INFORMATION
  Report Type: 
  Country: None (occurrence: None)
  Receive Date: 20100715
  Receipt Date: 20100706
  Transmission Date: 20110219
  Serious: Yes (Other)
  Sender: FDA-Public Use
  Company Number: CA-JNJFOC-20100701367

PATIENT
  Sex: Female
  Weight: 36.74 kg

DRUGS (2)
  1. CONCERTA [Suspect]
     Indication: ATTENTION DEFICIT/HYPERACTIVITY DISORDER
     Route: 048
  2. CONCERTA [Suspect]
     Route: 048

REACTIONS (14)
  - ABDOMINAL PAIN UPPER [None]
  - AGGRESSION [None]
  - DISCOMFORT [None]
  - DYSPNOEA [None]
  - FIBROMYALGIA [None]
  - INAPPROPRIATE SCHEDULE OF DRUG ADMINISTRATION [None]
  - INSOMNIA [None]
  - MANIA [None]
  - RASH [None]
  - RESTLESS LEGS SYNDROME [None]
  - TEARFULNESS [None]
  - TIC [None]
  - VISION BLURRED [None]
  - WEIGHT DECREASED [None]
